FAERS Safety Report 8833113 (Version 1)
Quarter: 2012Q4

REPORT INFORMATION
  Report Type: 
  Country: US (occurrence: US)
  Receive Date: 20121010
  Receipt Date: 20121010
  Transmission Date: 20130627
  Serious: No
  Sender: FDA-Public Use
  Company Number: US-009507513-1210USA001589

PATIENT
  Sex: Female

DRUGS (1)
  1. ASMANEX TWISTHALER [Suspect]
     Indication: ASTHMA
     Route: 055

REACTIONS (2)
  - Dysphonia [Unknown]
  - Oral candidiasis [Unknown]
